FAERS Safety Report 10654213 (Version 3)
Quarter: 2015Q1

REPORT INFORMATION
  Report Type: Spontaneous
  Country: IT (occurrence: IT)
  Receive Date: 20141216
  Receipt Date: 20150309
  Transmission Date: 20150720
  Serious: Yes (Hospitalization)
  Sender: FDA-Public Use
  Company Number: IT-009507513-1412ITA006465

PATIENT
  Age: 58 Year
  Sex: Female

DRUGS (5)
  1. PEGASYS [Interacting]
     Active Substance: PEGINTERFERON ALFA-2A
     Dosage: 135 MICROGRAM, WEEKLY
     Route: 058
     Dates: start: 20141015, end: 20141114
  2. REBETOL [Suspect]
     Active Substance: RIBAVIRIN
     Indication: CHRONIC HEPATITIS C
     Dosage: 1200 MG, QD
     Route: 048
     Dates: start: 20140715, end: 20141015
  3. TELAPREVIR [Interacting]
     Active Substance: TELAPREVIR
     Indication: HEPATITIS C
     Dosage: 2250 MG, DAILY
     Route: 048
     Dates: start: 20140715, end: 20141015
  4. PEGASYS [Interacting]
     Active Substance: PEGINTERFERON ALFA-2A
     Indication: CHRONIC HEPATITIS C
     Dosage: 180 MICROGRAM, WEEKLY
     Route: 058
     Dates: start: 20140715, end: 20141015
  5. REBETOL [Interacting]
     Active Substance: RIBAVIRIN
     Dosage: 800 MG, DAILY
     Route: 048
     Dates: start: 20141015, end: 20141114

REACTIONS (4)
  - Otitis media [Recovered/Resolved]
  - Anaemia [Recovered/Resolved]
  - Urinary tract infection [Recovered/Resolved]
  - Haemoglobin decreased [Recovered/Resolved]

NARRATIVE: CASE EVENT DATE: 20141003
